FAERS Safety Report 23466756 (Version 1)
Quarter: 2024Q1

REPORT INFORMATION
  Report Type: Spontaneous
  Country: US (occurrence: None)
  Receive Date: 20240201
  Receipt Date: 20240201
  Transmission Date: 20240409
  Serious: Yes (Death)
  Sender: FDA-Public Use
  Company Number: None

PATIENT
  Sex: Female

DRUGS (11)
  1. DALFAMPRIDINE [Suspect]
     Active Substance: DALFAMPRIDINE
     Indication: Multiple sclerosis
     Route: 048
     Dates: start: 20230317
  2. BACLOFEN POW [Concomitant]
  3. CYMBALTA CAP [Concomitant]
  4. DULOXETINE CAP [Concomitant]
  5. GABAPENTIN CAP [Concomitant]
  6. MELOXICAM POW [Concomitant]
  7. MYRBETRIQ TAB [Concomitant]
  8. OXYCODONE TAB [Concomitant]
  9. TRILEPTAL TAB [Concomitant]
  10. VITAMIN B12 TAB [Concomitant]
  11. VITAMIN D CAP [Concomitant]

REACTIONS (1)
  - Death [None]
